FAERS Safety Report 20876530 (Version 9)
Quarter: 2024Q1

REPORT INFORMATION
  Report Type: Spontaneous
  Country: US (occurrence: US)
  Receive Date: 20220526
  Receipt Date: 20240327
  Transmission Date: 20240409
  Serious: Yes (Other)
  Sender: FDA-Public Use
  Company Number: US-BRISTOL-MYERS SQUIBB COMPANY-2022-034252

PATIENT
  Age: 85 Year
  Sex: Female
  Weight: 60.78 kg

DRUGS (23)
  1. REVLIMID [Suspect]
     Active Substance: LENALIDOMIDE
     Indication: Plasma cell myeloma
     Dosage: D 1-21 Q 28 DAYS ?DRUG ONGOING
     Route: 048
     Dates: start: 20201026
  2. REVLIMID [Suspect]
     Active Substance: LENALIDOMIDE
     Dosage: DAILY 1-21, THEN 7 DAYS OFF
     Route: 048
     Dates: start: 20220630
  3. REVLIMID [Suspect]
     Active Substance: LENALIDOMIDE
     Dosage: D1-21 Q28 DAYS.
     Route: 048
     Dates: start: 20220605
  4. REVLIMID [Suspect]
     Active Substance: LENALIDOMIDE
     Dosage: D 1-21 Q 28 DAYS ?DRUG ONGOING
     Route: 048
     Dates: start: 20201026
  5. REVLIMID [Suspect]
     Active Substance: LENALIDOMIDE
     Dosage: DAILY 1-21, THEN 7 DAYS OFF
     Route: 048
     Dates: start: 20230713
  6. ASPIRIN [Concomitant]
     Active Substance: ASPIRIN
     Indication: Product used for unknown indication
     Route: 048
  7. DEXAMETHASONE [Concomitant]
     Active Substance: DEXAMETHASONE
     Indication: Product used for unknown indication
     Route: 048
  8. HUMAN IMMUNOGLOBULIN G [Concomitant]
     Active Substance: HUMAN IMMUNOGLOBULIN G
     Indication: Product used for unknown indication
     Route: 042
  9. TRAMADOL [Concomitant]
     Active Substance: TRAMADOL\TRAMADOL HYDROCHLORIDE
     Indication: Product used for unknown indication
  10. TYLENOL [Concomitant]
     Active Substance: ACETAMINOPHEN
     Indication: Product used for unknown indication
  11. LIOTHYRONINE [Concomitant]
     Active Substance: LIOTHYRONINE
     Indication: Product used for unknown indication
  12. VITAMIN C [Concomitant]
     Active Substance: ASCORBIC ACID
     Indication: Product used for unknown indication
  13. CURCUMAX PRO [Concomitant]
     Indication: Product used for unknown indication
  14. ERGOCALCIFEROL [Concomitant]
     Active Substance: ERGOCALCIFEROL
     Indication: Product used for unknown indication
  15. MENAQUINONE 6 [Concomitant]
     Active Substance: MENAQUINONE 6
     Indication: Product used for unknown indication
  16. FISH OIL [Concomitant]
     Active Substance: FISH OIL
     Indication: Product used for unknown indication
  17. MAGNESIUM [Concomitant]
     Active Substance: MAGNESIUM
     Indication: Product used for unknown indication
  18. ASPIRIN [Concomitant]
     Active Substance: ASPIRIN
     Indication: Product used for unknown indication
  19. VITAMIN B12 [Concomitant]
     Active Substance: CYANOCOBALAMIN
     Indication: Product used for unknown indication
  20. GRAPE SEED EXTRACT [CITRUS X AURANTIUM FRUIT;VITIS VINIFERA SEED] [Concomitant]
     Indication: Product used for unknown indication
     Dosage: PRESERVATIVES
  21. QUERCETIN [Concomitant]
     Active Substance: QUERCETIN
     Indication: Product used for unknown indication
  22. MELATONIN [Concomitant]
     Active Substance: MELATONIN
     Indication: Product used for unknown indication
  23. ALPHA LIPOIC ACID [Concomitant]
     Active Substance: .ALPHA.-LIPOIC ACID
     Indication: Product used for unknown indication

REACTIONS (5)
  - Plasma cell myeloma [Not Recovered/Not Resolved]
  - Blood immunoglobulin G decreased [Not Recovered/Not Resolved]
  - Anaemia [Not Recovered/Not Resolved]
  - Auditory disorder [Unknown]
  - Product dose omission in error [Unknown]
